FAERS Safety Report 6416132-2 (Version None)
Quarter: 2009Q4

REPORT INFORMATION
  Report Type: 
  Country: None (occurrence: None)
  Receive Date: 20091027
  Receipt Date: 20091022
  Transmission Date: 20100525
  Serious: Yes (Other)
  Sender: FDA-Public Use
  Company Number: US-AVENTIS-200912243US

PATIENT
  Sex: Female
  Weight: 59.09 kg

DRUGS (12)
  1. KETEK [Suspect]
     Indication: LYME DISEASE
     Dosage: DOSE: 800 MG
     Dates: start: 20090101, end: 20090115
  2. HOMEOPATIC PREPARATION [Suspect]
     Dosage: DOSE: UNK
  3. IRON INFUSION [Suspect]
     Dosage: DOSE: UNK
     Route: 051
     Dates: start: 20090101
  4. FLAGYL [Suspect]
     Indication: LYME DISEASE
     Dosage: DOSE: 500 MG BID  2 WEEK ON/ 2 WEEKS OFF
     Route: 048
  5. FLAGYL [Suspect]
     Dosage: DOSE: 500 MG BID 1 WEEK ON / 3 WEEKS OFF
     Route: 048
  6. VIT B 12 [Suspect]
     Dosage: DOSE: 1-2/WEEK
     Route: 051
  7. NYSTATIN [Suspect]
     Indication: FUNGAL INFECTION
     Dosage: DOSE: UNK
     Route: 048
  8. VALIUM [Suspect]
     Dosage: DOSE: 1 MG ALTERNATE NIGHTS
     Route: 048
  9. XANAX [Suspect]
     Dosage: DOSE: 0.5 MG ALTERNATE NIGHTSD
  10. CYMBALTA [Suspect]
     Dosage: DOSE: 20-40 MG
     Route: 048
  11. MINICYCLINE [Suspect]
     Indication: LYME DISEASE
     Route: 048
  12. PLAQUENIL                          /00072601/ [Concomitant]
     Indication: LYME DISEASE
     Route: 048

REACTIONS (12)
  - ALANINE AMINOTRANSFERASE INCREASED [None]
  - ASPARTATE AMINOTRANSFERASE INCREASED [None]
  - BLOOD LACTATE DEHYDROGENASE INCREASED [None]
  - DYSGEUSIA [None]
  - HEART RATE INCREASED [None]
  - HEART RATE IRREGULAR [None]
  - HEPATIC ENZYME INCREASED [None]
  - IRON DEFICIENCY ANAEMIA [None]
  - NAUSEA [None]
  - OFF LABEL USE [None]
  - PYREXIA [None]
  - SOMNOLENCE [None]
